FAERS Safety Report 18715316 (Version 3)
Quarter: 2021Q3

REPORT INFORMATION
  Report Type: Spontaneous
  Country: CZ (occurrence: CZ)
  Receive Date: 20210108
  Receipt Date: 20210816
  Transmission Date: 20211014
  Serious: Yes (Other)
  Sender: FDA-Public Use
  Company Number: CZ-ROCHE-2745616

PATIENT
  Age: 79 Year
  Sex: Male

DRUGS (26)
  1. HEMLIBRA [Suspect]
     Active Substance: EMICIZUMAB-KXWH
     Indication: FACTOR VIII DEFICIENCY
     Dosage: (CLASSICAL DOSE: ONCE A WEEK) CURRENTLY TWICE 60 MG TO ABOUT 82 KG ONCE A WEEK WEEK?3 MG/KG WEEKLY A
     Route: 065
     Dates: start: 20200826
  2. TORVACARD [Concomitant]
     Active Substance: ATORVASTATIN CALCIUM
  3. GODASAL [Concomitant]
     Active Substance: ASPIRIN\GLYCINE
  4. RITUXIMAB. [Concomitant]
     Active Substance: RITUXIMAB
     Dates: start: 201409
  5. PREDNISONE. [Concomitant]
     Active Substance: PREDNISONE
  6. PARACETAMOL [Concomitant]
     Active Substance: ACETAMINOPHEN
  7. BURONIL [Concomitant]
     Active Substance: MELPERONE HYDROCHLORIDE
  8. HELICID [Concomitant]
     Active Substance: OMEPRAZOLE
  9. FANHDI [Concomitant]
     Active Substance: ANTIHEMOPHILIC FACTOR HUMAN
  10. RITUXIMAB. [Concomitant]
     Active Substance: RITUXIMAB
     Dates: start: 201510
  11. RITUXIMAB. [Concomitant]
     Active Substance: RITUXIMAB
     Dates: start: 201906
  12. FEIBA [Concomitant]
     Active Substance: ANTI-INHIBITOR COAGULANT COMPLEX
  13. RHEFLUIN [Concomitant]
  14. FURON [Concomitant]
     Active Substance: FUROSEMIDE
  15. ZEFFIX [Concomitant]
     Active Substance: LAMIVUDINE
  16. DUODART [Concomitant]
     Active Substance: DUTASTERIDE\TAMSULOSIN
  17. HALOPERIDOL. [Concomitant]
     Active Substance: HALOPERIDOL
  18. VIGANTOL [Concomitant]
  19. RITUXIMAB. [Concomitant]
     Active Substance: RITUXIMAB
     Dates: start: 201810
  20. LUSOPRESS [Concomitant]
     Active Substance: NITRENDIPINE
  21. CYCLOPHOSPHAMIDE. [Concomitant]
     Active Substance: CYCLOPHOSPHAMIDE
     Dosage: 100?150 MG/DAY
  22. ACETYLSALICYLIC ACID [Concomitant]
     Active Substance: ASPIRIN
  23. CONCOR [Concomitant]
     Active Substance: BISOPROLOL FUMARATE
  24. CYCLOPHOSPHAMIDE. [Concomitant]
     Active Substance: CYCLOPHOSPHAMIDE
  25. RITUXIMAB. [Concomitant]
     Active Substance: RITUXIMAB
     Dates: start: 201711
  26. CLEXANE [Concomitant]
     Active Substance: ENOXAPARIN SODIUM
     Dosage: AT 24 HOURS FOR 4 DAYS
     Route: 058

REACTIONS (2)
  - Atrial fibrillation [Unknown]
  - Cardiac failure [Unknown]

NARRATIVE: CASE EVENT DATE: 20201211
